FAERS Safety Report 5147211-8 (Version None)
Quarter: 2006Q4

REPORT INFORMATION
  Report Type: 
  Country: None (occurrence: None)
  Receive Date: 20061103
  Receipt Date: 20061019
  Transmission Date: 20070319
  Serious: Yes (Hospitalization)
  Sender: FDA-Public Use
  Company Number: US-2006-031753

PATIENT
  Age: 25 Year
  Sex: Female

DRUGS (1)
  1. BETASERON [Suspect]
     Dosage: SUBCUTANEOUS
     Route: 058

REACTIONS (1)
  - ILEITIS [None]
